FAERS Safety Report 26201778 (Version 1)
Quarter: 2025Q4

REPORT INFORMATION
  Report Type: Spontaneous
  Country: US (occurrence: US)
  Receive Date: 20251226
  Receipt Date: 20251226
  Transmission Date: 20260118
  Serious: Yes (Hospitalization)
  Sender: UROGEN PHARMA
  Company Number: US-UROGEN PHARMA LTD.-2025-UGN-000221

PATIENT

DRUGS (2)
  1. JELMYTO [Suspect]
     Active Substance: MITOMYCIN
     Indication: Product used for unknown indication
     Dosage: 5 MILLILITER, ONCE A WEEK (INSTILLATION)
     Dates: start: 20251009, end: 20251009
  2. JELMYTO [Suspect]
     Active Substance: MITOMYCIN
     Dosage: 5 MILLILITER, ONCE A WEEK (INSTILLATION)
     Dates: start: 20251030, end: 20251030

REACTIONS (1)
  - Flank pain [Unknown]

NARRATIVE: CASE EVENT DATE: 20251001
